FAERS Safety Report 7683360-8 (Version None)
Quarter: 2011Q3

REPORT INFORMATION
  Report Type: 
  Country: None (occurrence: None)
  Receive Date: 20110815
  Receipt Date: 20110805
  Transmission Date: 20111222
  Serious: Yes (Other)
  Sender: FDA-Public Use
  Company Number: BE-ASTRAZENECA-2011SE28016

PATIENT
  Sex: Female
  Weight: 62 kg

DRUGS (2)
  1. XYLOCAINE [Suspect]
     Indication: BACK PAIN
     Dosage: 5 CC
     Route: 008
     Dates: start: 20100930, end: 20100930
  2. DEPO-MEDROL [Concomitant]
     Route: 008
     Dates: start: 20101030, end: 20101030

REACTIONS (1)
  - PRESYNCOPE [None]
